FAERS Safety Report 15788919 (Version 3)
Quarter: 2019Q1

REPORT INFORMATION
  Report Type: Spontaneous
  Country: US (occurrence: US)
  Receive Date: 20190104
  Receipt Date: 20190328
  Transmission Date: 20190417
  Serious: Yes (Hospitalization)
  Sender: FDA-Public Use
  Company Number: US-TEVA-2018-US-986751

PATIENT
  Age: 80 Year
  Sex: Female

DRUGS (2)
  1. MUPIROCIN. [Suspect]
     Active Substance: MUPIROCIN
     Indication: ECZEMA
     Route: 065
     Dates: start: 20181127, end: 20181128
  2. MUPIROCIN. [Suspect]
     Active Substance: MUPIROCIN
     Indication: RASH
     Route: 065
     Dates: start: 20181205, end: 20181205

REACTIONS (11)
  - Diplopia [Recovered/Resolved]
  - Diarrhoea [Unknown]
  - Pruritus [Unknown]
  - Visual impairment [Unknown]
  - Burning sensation [Unknown]
  - Pain [Unknown]
  - Wheezing [Recovered/Resolved]
  - Respiratory tract infection bacterial [Unknown]
  - Erythema [Unknown]
  - Respiratory disorder [Unknown]
  - Asthenia [Unknown]

NARRATIVE: CASE EVENT DATE: 20181205
